FAERS Safety Report 5321684-X (Version None)
Quarter: 2007Q2

REPORT INFORMATION
  Report Type: 
  Country: None (occurrence: None)
  Receive Date: 20070510
  Receipt Date: 20070508
  Transmission Date: 20071010
  Serious: Yes (Life-Threatening, Hospitalization, Other)
  Sender: FDA-Public Use
  Company Number: US-ASTRAZENECA-2007UW06773

PATIENT
  Age: 867 Day
  Sex: Female
  Weight: 10.9 kg

DRUGS (6)
  1. PULMICORT RESPULES [Suspect]
     Indication: WHEEZING
     Route: 055
  2. PULMICORT RESPULES [Suspect]
     Indication: HYPERSENSITIVITY
     Route: 055
  3. XOPENEX [Concomitant]
     Indication: BRONCHOSPASM
     Route: 055
  4. ZYRTEC [Concomitant]
     Indication: RHINITIS
     Route: 048
  5. SINGULAIR [Concomitant]
     Indication: MULTIPLE ALLERGIES
     Route: 048
  6. PREDNISONE TAB [Concomitant]

REACTIONS (7)
  - ANAPHYLACTIC REACTION [None]
  - APNOEIC ATTACK [None]
  - GENERALISED ERYTHEMA [None]
  - RESPIRATORY DISTRESS [None]
  - RESTLESSNESS [None]
  - UNRESPONSIVE TO STIMULI [None]
  - URTICARIA [None]
